FAERS Safety Report 26116006 (Version 1)
Quarter: 2025Q4

REPORT INFORMATION
  Report Type: Spontaneous
  Country: US (occurrence: US)
  Receive Date: 20251203
  Receipt Date: 20251203
  Transmission Date: 20260118
  Serious: No
  Sender: CELLTRION
  Company Number: US-CELLTRION INC.-2025US034030

PATIENT

DRUGS (2)
  1. YUFLYMA [Suspect]
     Active Substance: ADALIMUMAB-AATY
     Indication: Proctitis ulcerative
     Dosage: 40 MG, ONCE EVERY OTHER WEEK
     Route: 058
     Dates: start: 2022
  2. YUFLYMA [Suspect]
     Active Substance: ADALIMUMAB-AATY
     Dosage: 40 MG, ONCE EVERY OTHER WEEK
     Route: 058
     Dates: start: 20250917

REACTIONS (3)
  - Product administration error [Recovered/Resolved]
  - Accidental exposure to product [Recovered/Resolved]
  - Exposure via skin contact [Recovered/Resolved]

NARRATIVE: CASE EVENT DATE: 20250917
